FAERS Safety Report 14305994 (Version 1)
Quarter: 2017Q4

REPORT INFORMATION
  Report Type: Spontaneous
  Country: US (occurrence: US)
  Receive Date: 20171219
  Receipt Date: 20171219
  Transmission Date: 20180321
  Serious: No
  Sender: FDA-Public Use
  Company Number: US-PFIZER INC-2017394894

PATIENT
  Age: 58 Year
  Sex: Male
  Weight: 72 kg

DRUGS (16)
  1. IBRANCE [Suspect]
     Active Substance: PALBOCICLIB
     Indication: PANCREATIC CARCINOMA METASTATIC
     Dosage: 125 MG, CYCLIC (21 DAYS; OFF FOR 7 DAYS IN A 28 DAY CYCLE)
     Route: 048
     Dates: start: 20170831, end: 201712
  2. GABAPENTIN. [Concomitant]
     Active Substance: GABAPENTIN
     Indication: NEUROPATHY PERIPHERAL
     Dosage: 600 MG, 3X/DAY
     Route: 048
     Dates: start: 20161118
  3. CHLORHEXIDINE GLUCONATE. [Concomitant]
     Active Substance: CHLORHEXIDINE GLUCONATE
     Dosage: 15 ML, 3X/DAY (15 ML SWISH AND SPIT THREE TIMES DAILY)
     Route: 048
     Dates: start: 20161102
  4. KREON [Concomitant]
     Active Substance: PANCRELIPASE
     Indication: PANCREATIC CARCINOMA
     Dosage: UNK
  5. NEULASTA [Concomitant]
     Active Substance: PEGFILGRASTIM
     Dosage: UNK (6 MG/0.6 ML SUBCUTANEOUS PREFILLED SYRINGE KIT)
     Route: 058
     Dates: start: 20170830
  6. OMEPRAZOLE. [Concomitant]
     Active Substance: OMEPRAZOLE
     Dosage: 40 MG, DAILY
     Route: 048
     Dates: start: 20170705
  7. ATORVASTATIN CALCIUM. [Concomitant]
     Active Substance: ATORVASTATIN CALCIUM
     Dosage: 10 MG, UNK
     Route: 048
  8. OPIUM. [Concomitant]
     Active Substance: OPIUM
     Indication: ADENOCARCINOMA PANCREAS
  9. DEXAMETHASONE. [Concomitant]
     Active Substance: DEXAMETHASONE
     Indication: ADENOCARCINOMA PANCREAS
     Dosage: 8 MG, UNK (TAKE 2 TABLETS DAILY ON DAYS 2, 3, AND 4 AFTER TREATMENT)
     Route: 048
     Dates: start: 20170627
  10. OPIUM ALKALOIDS TOTAL [Concomitant]
     Indication: PAIN
     Dosage: UNK
  11. AMLODIPINE BESYLATE. [Concomitant]
     Active Substance: AMLODIPINE BESYLATE
     Dosage: 10 MG, UNK
     Route: 048
  12. CREON [Concomitant]
     Active Substance: PANCRELIPASE AMYLASE\PANCRELIPASE LIPASE\PANCRELIPASE PROTEASE
     Indication: ADENOCARCINOMA PANCREAS
     Dosage: 24000 IU, 4X/DAY
     Route: 048
     Dates: start: 20160323
  13. DIPHENOXYLATE HCL + ATROPINE SULFATE [Concomitant]
     Active Substance: ATROPINE SULFATE\DIPHENOXYLATE HYDROCHLORIDE
     Indication: DIARRHOEA
     Dosage: 1 DF, 1X/DAY [DIPHENOXYLATE HCL: 2.5 MG]/ [ATROPINE SULFATE: 0.025 MG] (TAKE 1 TABLET)
     Route: 048
     Dates: start: 20170830
  14. LOVENOX [Concomitant]
     Active Substance: ENOXAPARIN SODIUM
     Indication: THROMBOCYTOSIS
     Dosage: 1 DF, DAILY
     Route: 058
     Dates: start: 20170531
  15. OPIUM. [Concomitant]
     Active Substance: OPIUM
     Indication: DIARRHOEA
     Dosage: 2 GTT, AS NEEDED (10 MG/ML)
     Route: 048
     Dates: start: 20170823
  16. LIDOCAINE. [Concomitant]
     Active Substance: LIDOCAINE
     Dosage: 5 ML, 3X/DAY (5ML SWISH AND SWALLOW THREE TIMES DAILY)
     Route: 048
     Dates: start: 20161102

REACTIONS (2)
  - Neoplasm progression [Unknown]
  - Product use in unapproved indication [Unknown]

NARRATIVE: CASE EVENT DATE: 2017
